FAERS Safety Report 17487527 (Version 1)
Quarter: 2020Q1

REPORT INFORMATION
  Report Type: Spontaneous
  Country: US (occurrence: US)
  Receive Date: 20200303
  Receipt Date: 20200303
  Transmission Date: 20200409
  Serious: Yes (Hospitalization, Other)
  Sender: FDA-Public Use
  Company Number: US-JNJFOC-20200233395

PATIENT
  Age: 61 Year
  Sex: Female
  Weight: 52.21 kg

DRUGS (4)
  1. ASPIRIN. [Concomitant]
     Active Substance: ASPIRIN
     Indication: CARDIAC DISORDER
  2. INVEGA SUSTENNA [Suspect]
     Active Substance: PALIPERIDONE PALMITATE
     Route: 030
  3. DILANTIN [Suspect]
     Active Substance: PHENYTOIN
     Indication: SEIZURE
     Route: 065
  4. INVEGA SUSTENNA [Suspect]
     Active Substance: PALIPERIDONE PALMITATE
     Indication: SCHIZOAFFECTIVE DISORDER DEPRESSIVE TYPE
     Route: 030
     Dates: start: 201902

REACTIONS (4)
  - Tardive dyskinesia [Unknown]
  - Seizure [Unknown]
  - Gait disturbance [Unknown]
  - Scratch [Unknown]

NARRATIVE: CASE EVENT DATE: 201912
